FAERS Safety Report 15845435 (Version 2)
Quarter: 2019Q1

REPORT INFORMATION
  Report Type: Report from Study
  Country: EG (occurrence: EG)
  Receive Date: 20190119
  Receipt Date: 20190126
  Transmission Date: 20190417
  Serious: Yes (Death, Other)
  Sender: FDA-Public Use
  Company Number: PHHY2019EG009888

PATIENT
  Age: 32 Year
  Sex: Male

DRUGS (1)
  1. AFINITOR [Suspect]
     Active Substance: EVEROLIMUS
     Indication: LYMPHOMA
     Dosage: 5 MG, BID
     Route: 065
     Dates: start: 2017, end: 2018

REACTIONS (14)
  - Insomnia [Not Recovered/Not Resolved]
  - Product use in unapproved indication [Unknown]
  - Fatigue [Not Recovered/Not Resolved]
  - Diabetes mellitus [Not Recovered/Not Resolved]
  - Anosmia [Not Recovered/Not Resolved]
  - Neoplasm [Fatal]
  - Exophthalmos [Not Recovered/Not Resolved]
  - Concomitant disease aggravated [Not Recovered/Not Resolved]
  - Swelling face [Not Recovered/Not Resolved]
  - Pneumonitis [Not Recovered/Not Resolved]
  - Hypertension [Not Recovered/Not Resolved]
  - Renal failure [Not Recovered/Not Resolved]
  - Hepatic lesion [Not Recovered/Not Resolved]
  - Decreased appetite [Not Recovered/Not Resolved]

NARRATIVE: CASE EVENT DATE: 201801
